FAERS Safety Report 6546752-6 (Version None)
Quarter: 2010Q1

REPORT INFORMATION
  Report Type: 
  Country: None (occurrence: None)
  Receive Date: 20100122
  Receipt Date: 20091229
  Transmission Date: 20100710
  Serious: No
  Sender: FDA-Public Use
  Company Number: FR-ROCHE-674897

PATIENT
  Age: 17 Year
  Sex: Female
  Weight: 61 kg

DRUGS (2)
  1. TAMIFLU [Suspect]
     Dosage: 2 CAPSULES IN THE MORNING
     Route: 048
  2. TAMIFLU [Suspect]
     Route: 048
     Dates: start: 20091210, end: 20091214

REACTIONS (2)
  - INCORRECT DOSE ADMINISTERED [None]
  - NO ADVERSE EVENT [None]
